FAERS Safety Report 9770339 (Version 2)
Quarter: 2013Q4

REPORT INFORMATION
  Report Type: Report from Study
  Country: AU (occurrence: AU)
  Receive Date: 20131218
  Receipt Date: 20131218
  Transmission Date: 20140711
  Serious: Yes (Hospitalization)
  Sender: FDA-Public Use
  Company Number: AU-ABBVIE-10P-008-0637562-00

PATIENT
  Age: 39 Year
  Sex: Female
  Weight: 52 kg

DRUGS (7)
  1. HUMIRA [Suspect]
     Indication: CROHN^S DISEASE
     Dosage: BASELINE
     Route: 058
     Dates: start: 20090109, end: 20090109
  2. HUMIRA [Suspect]
     Route: 058
     Dates: end: 20091201
  3. LOSEC [Concomitant]
     Indication: GASTROOESOPHAGEAL REFLUX DISEASE
     Dates: start: 200701
  4. EFEXOR [Concomitant]
     Indication: DEPRESSION
     Dates: start: 2006
  5. CALTRATE [Concomitant]
     Indication: ARTHRALGIA
     Dates: start: 2008
  6. PREMARIN [Concomitant]
     Indication: HORMONE REPLACEMENT THERAPY
     Dates: start: 20070830
  7. PANADEINE CO [Concomitant]
     Indication: ANALGESIC THERAPY
     Dates: start: 2009

REACTIONS (2)
  - Intestinal obstruction [Recovered/Resolved]
  - Post procedural haemorrhage [Recovered/Resolved]
